FAERS Safety Report 7273334-3 (Version None)
Quarter: 2011Q1

REPORT INFORMATION
  Report Type: 
  Country: None (occurrence: None)
  Receive Date: 20110203
  Receipt Date: 20101018
  Transmission Date: 20110831
  Serious: No
  Sender: FDA-Public Use
  Company Number: US-ABBOTT-10P-163-0679238-00

PATIENT
  Sex: Female
  Weight: 59.02 kg

DRUGS (3)
  1. IMITREX [Concomitant]
     Indication: MIGRAINE
     Dosage: USUALLY TAKE 2 TO 4 INJECTIONS A MONTH
  2. ADDERALL 10 [Concomitant]
     Indication: ATTENTION DEFICIT/HYPERACTIVITY DISORDER
  3. SYNTHROID [Suspect]
     Indication: HYPOTHYROIDISM
     Dates: start: 20060101

REACTIONS (1)
  - DRY MOUTH [None]
